FAERS Safety Report 22098643 (Version 2)
Quarter: 2023Q2

REPORT INFORMATION
  Report Type: Report from Study
  Country: ES (occurrence: None)
  Receive Date: 20230315
  Receipt Date: 20230402
  Transmission Date: 20230721
  Serious: Yes (Hospitalization)
  Sender: FDA-Public Use
  Company Number: ES-ROCHE-3288349

PATIENT
  Age: 29 Year
  Sex: Female
  Weight: 55 kg

DRUGS (2)
  1. ATEZOLIZUMAB [Suspect]
     Active Substance: ATEZOLIZUMAB
     Indication: Cholangiocarcinoma
     Dosage: DAY 1 OF CHEMOTHERAPY TREATMENT CYCLE 2
     Route: 041
     Dates: start: 20221221, end: 20230125
  2. AFM-24 [Suspect]
     Active Substance: AFM-24
     Indication: Cholangiocarcinoma
     Dosage: C2D8
     Route: 042
     Dates: start: 20221214, end: 20230125

REACTIONS (1)
  - Urinary tract infection [Recovered/Resolved]

NARRATIVE: CASE EVENT DATE: 20230131
